FAERS Safety Report 8124121-5 (Version None)
Quarter: 2012Q1

REPORT INFORMATION
  Report Type: 
  Country: None (occurrence: None)
  Receive Date: 20120209
  Receipt Date: 20120131
  Transmission Date: 20120608
  Serious: Yes (Other)
  Sender: FDA-Public Use
  Company Number: IT-JNJFOC-20120107162

PATIENT
  Sex: Male

DRUGS (1)
  1. INVEGA [Suspect]
     Indication: DEPRESSION
     Route: 048
     Dates: start: 20111118, end: 20111120

REACTIONS (2)
  - PRURITUS [None]
  - FACE OEDEMA [None]
